FAERS Safety Report 19063173 (Version 1)
Quarter: 2021Q1

REPORT INFORMATION
  Report Type: Spontaneous
  Country: AU (occurrence: AU)
  Receive Date: 20210326
  Receipt Date: 20210326
  Transmission Date: 20210420
  Serious: Yes (Hospitalization)
  Sender: FDA-Public Use
  Company Number: AU-MYLANLABS-2021M1018396

PATIENT
  Age: 67 Year
  Sex: Male

DRUGS (6)
  1. CYTARABINE. [Suspect]
     Active Substance: CYTARABINE
     Indication: TESTIS CANCER
     Dosage: INDUCTION CHEMOTHERAPY  INTRATHECAL 7 + 3 REGIMEN INCLUDING CYTARABINE, METHOTREXATE, DEXAMETHASONE
     Route: 037
  2. METHOTREXATE. [Suspect]
     Active Substance: METHOTREXATE
     Indication: TESTIS CANCER
     Dosage: INDUCTION CHEMOTHERAPY INTRATHECAL 7 + 3 REGIMEN INCLUDING CYTARABINE, METHOTREXATE, DEXAMETHASONE
     Route: 037
  3. DEXAMETHASONE. [Suspect]
     Active Substance: DEXAMETHASONE
     Indication: CHLOROMA
  4. METHOTREXATE. [Suspect]
     Active Substance: METHOTREXATE
     Indication: CHLOROMA
  5. CYTARABINE. [Suspect]
     Active Substance: CYTARABINE
     Indication: CHLOROMA
  6. DEXAMETHASONE. [Suspect]
     Active Substance: DEXAMETHASONE
     Indication: TESTIS CANCER
     Dosage: INDUCTION CHEMOTHERAPY  INTRATHECAL 7 + 3 REGIMEN INCLUDING CYTARABINE, METHOTREXATE,DEXAMETHASONE
     Route: 037

REACTIONS (5)
  - Neutropenic colitis [Recovering/Resolving]
  - Escherichia bacteraemia [Recovering/Resolving]
  - Delirium [Recovering/Resolving]
  - Staphylococcal bacteraemia [Recovering/Resolving]
  - Drug reaction with eosinophilia and systemic symptoms [Recovering/Resolving]
